FAERS Safety Report 12002530 (Version 1)
Quarter: 2016Q1

REPORT INFORMATION
  Report Type: Report from Study
  Country: US (occurrence: US)
  Receive Date: 20160204
  Receipt Date: 20160204
  Transmission Date: 20160526
  Serious: Yes (Other)
  Sender: FDA-Public Use
  Company Number: US-ABBVIE-15K-163-1430638-00

PATIENT
  Age: 61 Year
  Sex: Female
  Weight: 77.18 kg

DRUGS (4)
  1. METHOTREXATE [Concomitant]
     Active Substance: METHOTREXATE
     Indication: PRODUCT USED FOR UNKNOWN INDICATION
  2. FOLIC ACID. [Concomitant]
     Active Substance: FOLIC ACID
     Indication: PRODUCT USED FOR UNKNOWN INDICATION
  3. HUMIRA [Suspect]
     Active Substance: ADALIMUMAB
     Indication: RHEUMATOID ARTHRITIS
     Route: 058
     Dates: start: 201310, end: 20150522
  4. IBUPROFEN. [Concomitant]
     Active Substance: IBUPROFEN
     Indication: PRODUCT USED FOR UNKNOWN INDICATION

REACTIONS (7)
  - Pruritus [Recovered/Resolved]
  - Staphylococcal infection [Recovering/Resolving]
  - Skin exfoliation [Recovered/Resolved]
  - Rash macular [Recovering/Resolving]
  - Abscess [Recovered/Resolved]
  - Fungal infection [Recovering/Resolving]
  - Furuncle [Recovered/Resolved]

NARRATIVE: CASE EVENT DATE: 201505
